FAERS Safety Report 6242272-7 (Version None)
Quarter: 2009Q2

REPORT INFORMATION
  Report Type: 
  Country: None (occurrence: None)
  Receive Date: 20090622
  Receipt Date: 20090622
  Transmission Date: 20091009
  Serious: Yes (Hospitalization)
  Sender: FDA-Public Use
  Company Number: None

PATIENT
  Age: 44 Year
  Sex: Female

DRUGS (1)
  1. MOXIFLOXACIN HCL [Suspect]
     Indication: INFECTION
     Dosage: 400 MG EVERY DAY PO
     Route: 048
     Dates: start: 20090312, end: 20090313

REACTIONS (1)
  - ANAPHYLACTIC REACTION [None]
